FAERS Safety Report 6471160-6 (Version None)
Quarter: 2009Q4

REPORT INFORMATION
  Report Type: 
  Country: None (occurrence: None)
  Receive Date: 20091203
  Receipt Date: 20080616
  Transmission Date: 20100525
  Serious: Yes (Hospitalization)
  Sender: FDA-Public Use
  Company Number: JP-ELI_LILLY_AND_COMPANY-JP200802002921

PATIENT
  Sex: Male
  Weight: 47.5 kg

DRUGS (18)
  1. PEMETREXED [Suspect]
     Indication: PLEURAL MESOTHELIOMA MALIGNANT RECURRENT
     Dosage: 500 MG/M2, OTHER
     Route: 042
     Dates: start: 20070403, end: 20070605
  2. PEMETREXED [Suspect]
     Dosage: 500 MG/M2, OTHER
     Route: 042
     Dates: start: 20071002, end: 20071002
  3. CISPLATIN [Suspect]
     Indication: PLEURAL MESOTHELIOMA MALIGNANT RECURRENT
     Dosage: 60 MG/M2, OTHER
     Route: 042
     Dates: start: 20070403, end: 20070605
  4. CISPLATIN [Suspect]
     Dosage: 60 MG/M2, OTHER
     Route: 042
     Dates: start: 20071002, end: 20071002
  5. PANVITAN [Concomitant]
     Dosage: 1 G, DAILY (1/D)
     Route: 048
     Dates: start: 20070327, end: 20070627
  6. PANVITAN [Concomitant]
     Dosage: 1 G, DAILY (1/D)
     Route: 042
     Dates: start: 20070925, end: 20071102
  7. METHYCOBAL [Concomitant]
     Dosage: 1 MG, OTHER
     Route: 030
     Dates: start: 20070327, end: 20070604
  8. METHYCOBAL [Concomitant]
     Dosage: 1 MG, OTHER
     Route: 030
     Dates: start: 20070925, end: 20070925
  9. GLIMICRON [Concomitant]
     Indication: DIABETES MELLITUS
     Dosage: 20 MG, DAILY (1/D)
     Route: 048
     Dates: end: 20070529
  10. GLIMICRON [Concomitant]
     Dosage: 40 MG, DAILY (1/D)
     Route: 048
     Dates: start: 20070530, end: 20070717
  11. GLIMICRON [Concomitant]
     Dosage: 80 MG, DAILY (1/D)
     Route: 048
     Dates: start: 20070718, end: 20070924
  12. GLIMICRON [Concomitant]
     Dosage: 120 MG, DAILY (1/D)
     Route: 048
     Dates: start: 20070925
  13. GASTER [Concomitant]
     Indication: GASTRITIS
     Dosage: 20 MG, DAILY (1/D)
     Route: 048
     Dates: end: 20071103
  14. MYSLEE [Concomitant]
     Indication: INSOMNIA
     Dosage: 5 MG, DAILY (1/D)
     Route: 048
     Dates: end: 20071012
  15. AMOBAN [Concomitant]
     Indication: INSOMNIA
     Dosage: 7.5 MG, DAILY (1/D)
     Route: 048
     Dates: start: 20071013, end: 20071016
  16. GRAMALIL [Concomitant]
     Indication: INSOMNIA
     Dosage: 25 MG, DAILY (1/D)
     Route: 048
     Dates: start: 20071017
  17. LASIX [Concomitant]
     Indication: PROPHYLAXIS
     Dosage: 10 MG, DAILY (1/D)
     Route: 048
     Dates: start: 20071006, end: 20071013
  18. LASIX [Concomitant]
     Dosage: 40 MG, DAILY (1/D)
     Route: 048
     Dates: start: 20071017, end: 20071020

REACTIONS (1)
  - PERICARDIAL EFFUSION [None]
